FAERS Safety Report 6716151-2 (Version None)
Quarter: 2010Q2

REPORT INFORMATION
  Report Type: 
  Country: None (occurrence: None)
  Receive Date: 20100507
  Receipt Date: 20100505
  Transmission Date: 20101027
  Serious: Yes (Hospitalization, Other)
  Sender: FDA-Public Use
  Company Number: US-MERCK-0808USA01438

PATIENT
  Age: 74 Year
  Sex: Female
  Weight: 70 kg

DRUGS (14)
  1. FOSAMAX [Suspect]
     Indication: OSTEOPOROSIS PROPHYLAXIS
     Route: 048
     Dates: start: 20030203, end: 20051003
  2. [THERAPY UNSPECIFIED] [Concomitant]
     Indication: BLOOD PRESSURE
     Route: 065
     Dates: start: 20000101
  3. [THERAPY UNSPECIFIED] [Concomitant]
     Indication: BLOOD CHOLESTEROL
     Route: 065
     Dates: start: 20000101
  4. [THERAPY UNSPECIFIED] [Concomitant]
     Indication: DIABETES MELLITUS
     Route: 065
     Dates: start: 19980101
  5. ACCUPRIL [Concomitant]
     Indication: BLOOD PRESSURE
     Route: 065
     Dates: start: 20030105, end: 20050105
  6. ACCUPRIL [Concomitant]
     Indication: CARDIAC DISORDER
     Route: 065
     Dates: start: 20030105, end: 20050105
  7. HYDROCHLOROTHIAZIDE [Concomitant]
     Indication: BLOOD PRESSURE
     Route: 065
     Dates: start: 20000101, end: 20050203
  8. SYNTHROID [Concomitant]
     Indication: THYROID DISORDER
     Route: 065
     Dates: start: 19700101, end: 20050614
  9. PRAVACHOL [Concomitant]
     Indication: BLOOD CHOLESTEROL INCREASED
     Route: 065
     Dates: start: 20000101, end: 20060303
  10. ZOLOFT [Concomitant]
     Indication: DEPRESSION
     Route: 065
     Dates: start: 20030120, end: 20060515
  11. ISOSORBIDE [Concomitant]
     Indication: ANGINA PECTORIS
     Route: 065
     Dates: start: 20030125, end: 20050105
  12. CHLORPROPAMIDE [Concomitant]
     Indication: DIABETES MELLITUS
     Route: 065
     Dates: start: 20030107, end: 20050614
  13. NEXIUM [Concomitant]
     Indication: GASTROOESOPHAGEAL REFLUX DISEASE
     Route: 065
     Dates: start: 20030218, end: 20060410
  14. DILTIAZEM HYDROCHLORIDE [Concomitant]
     Indication: CARDIAC DISORDER
     Route: 065
     Dates: start: 20030521, end: 20060626

REACTIONS (32)
  - ANAEMIA [None]
  - ANGINA PECTORIS [None]
  - ANGIOPATHY [None]
  - BLOOD GLUCOSE [None]
  - BRONCHITIS [None]
  - CARDIAC DISORDER [None]
  - DENTAL CARIES [None]
  - DIABETIC GASTROPARESIS [None]
  - DIABETIC GASTROPATHY [None]
  - DIABETIC NEUROPATHY [None]
  - DIARRHOEA [None]
  - DIVERTICULITIS [None]
  - DUODENITIS [None]
  - DYSPNOEA EXERTIONAL [None]
  - FISTULA [None]
  - GASTRITIS [None]
  - HIATUS HERNIA [None]
  - IRON DEFICIENCY ANAEMIA [None]
  - LUNG ABSCESS [None]
  - OEDEMA PERIPHERAL [None]
  - OESOPHAGEAL STENOSIS [None]
  - OSTEOMYELITIS [None]
  - OSTEONECROSIS OF JAW [None]
  - OVERGROWTH BACTERIAL [None]
  - PERIPHERAL VASCULAR DISORDER [None]
  - PLEURAL EFFUSION [None]
  - PNEUMONIA [None]
  - RENAL DISORDER [None]
  - SENSITIVITY OF TEETH [None]
  - TOOTH INFECTION [None]
  - UPPER RESPIRATORY TRACT INFECTION [None]
  - WEIGHT INCREASED [None]
